FAERS Safety Report 24765270 (Version 1)
Quarter: 2024Q4

REPORT INFORMATION
  Report Type: Spontaneous
  Country: US (occurrence: None)
  Receive Date: 20241219
  Receipt Date: 20241219
  Transmission Date: 20250114
  Serious: No
  Sender: Public
  Company Number: None

PATIENT
  Age: 56 Year
  Sex: Female
  Weight: 86 kg

DRUGS (1)
  1. NALTREXONE HYDROCHLORIDE [Suspect]
     Active Substance: NALTREXONE HYDROCHLORIDE
     Indication: Weight decreased
     Dosage: FREQUENCY : DAILY;?
     Route: 048
     Dates: start: 20241001

REACTIONS (2)
  - Headache [None]
  - Migraine [None]

NARRATIVE: CASE EVENT DATE: 20241028
